FAERS Safety Report 9148855 (Version 1)
Quarter: 2013Q1

REPORT INFORMATION
  Report Type: Spontaneous
  Country: US (occurrence: None)
  Receive Date: 20130227
  Receipt Date: 20130227
  Transmission Date: 20140127
  Serious: Yes (Death)
  Sender: FDA-Public Use
  Company Number: AUR-APL-2013-00529

PATIENT
  Age: 57 Year
  Sex: Male

DRUGS (7)
  1. CARVEDILOL (CARVEDILOL) [Suspect]
     Indication: PRODUCT USED FOR UNKNOWN INDICATION
  2. LISINOPRIL (LISINOPRIL) [Suspect]
  3. DILTIAZEM [Suspect]
     Route: 048
  4. COCAINE [Suspect]
  5. DIAZEPAM (DIAZEPAM) [Suspect]
  6. TRAMADOL (TRAMADOL) [Suspect]
  7. AMIODARONE [Suspect]

REACTIONS (2)
  - Completed suicide [None]
  - Toxicity to various agents [None]
